FAERS Safety Report 7540796 (Version 4)
Quarter: 2013Q4

REPORT INFORMATION
  Report Type: Spontaneous
  Country: US (occurrence: US)
  Receive Date: 20100813
  Receipt Date: 20131127
  Transmission Date: 20140711
  Serious: Yes (Hospitalization)
  Sender: FDA-Public Use
  Company Number: US-MPIJNJ-2010-04201

PATIENT
  Age: 55 Year
  Sex: Female
  Weight: 89.4 kg

DRUGS (21)
  1. VELCADE [Suspect]
     Indication: PLASMA CELL MYELOMA
     Dosage: 2.5 MG, 1/WEEK
     Route: 042
     Dates: start: 20100126, end: 20100420
  2. CALCIUM 600 + D [Concomitant]
     Indication: SUPPLEMENTATION THERAPY
     Dosage: UNK
     Route: 048
  3. OXYCODONE WITH APAP [Concomitant]
     Indication: PAIN
     Dosage: UNK
     Route: 048
  4. CYCLOBENZAPRINE HYDROCHLORIDE [Concomitant]
     Dosage: 10 MG, TID
     Route: 048
  5. CLINDAMYCIN HYDROCHLORIDE [Concomitant]
     Dosage: 300 MG, TID
     Route: 048
  6. PROPOXYPHENE NAPSYLATE W/PARACETAMOL [Concomitant]
     Indication: PAIN
     Dosage: UNK
     Route: 048
  7. FUROSEMIDE [Concomitant]
     Dosage: 40 MG, QD
     Route: 048
  8. ACYCLOVIR                          /00587301/ [Concomitant]
     Dosage: 200 MG, QD
     Route: 048
  9. DEXAMETHASONE [Concomitant]
     Dosage: 40 MG, QD
     Route: 048
  10. GABAPENTIN [Concomitant]
     Dosage: 200 MG, TID
     Route: 048
  11. TAPENTADOL [Concomitant]
     Dosage: 75 MG, QD
     Route: 048
  12. PANTOPRAZOLE SODIUM [Concomitant]
     Dosage: 40 MG, QD
     Route: 048
  13. CARBIDOPA/LEVODOPA [Concomitant]
     Dosage: UNK
     Route: 048
  14. ARIXTRA [Concomitant]
     Dosage: 7.5 MG, UNK
     Route: 058
  15. PROMETHAZINE HYDROCHLORIDE [Concomitant]
     Indication: NAUSEA
     Dosage: 25 MG, UNK
     Route: 048
  16. PROMETHAZINE HYDROCHLORIDE [Concomitant]
     Indication: VOMITING
  17. LEXAPRO [Concomitant]
     Dosage: 5 MG, QD
     Route: 048
  18. SIMVASTATIN [Concomitant]
     Dosage: 20 MG, QD
     Route: 048
  19. WARFARIN SODIUM [Concomitant]
     Dosage: 2 MG, UNK
     Route: 048
  20. WARFARIN SODIUM [Concomitant]
     Dosage: 4 MG, 1/WEEK
     Route: 048
  21. MORPHINE SULFATE [Concomitant]
     Dosage: 15 MG, UNK
     Route: 048

REACTIONS (4)
  - Back pain [Recovered/Resolved]
  - Pancytopenia [Recovered/Resolved]
  - Pyrexia [Unknown]
  - Lethargy [Unknown]
